FAERS Safety Report 14858299 (Version 8)
Quarter: 2022Q1

REPORT INFORMATION
  Report Type: Report from Study
  Country: SE (occurrence: SE)
  Receive Date: 20180508
  Receipt Date: 20220223
  Transmission Date: 20220424
  Serious: Yes (Life-Threatening, Hospitalization, Other)
  Sender: FDA-Public Use
  Company Number: SE-AUROBINDO-AUR-APL-2018-024343

PATIENT
  Age: 55 Year
  Sex: Female

DRUGS (13)
  1. AMLODIPINE [Suspect]
     Active Substance: AMLODIPINE BESYLATE
     Indication: Product used for unknown indication
     Dosage: INGESTED LARGE AMOUNTS
     Route: 048
  2. AMLODIPINE [Suspect]
     Active Substance: AMLODIPINE BESYLATE
     Dosage: UNK
     Route: 065
  3. ALCOHOL [Suspect]
     Active Substance: ALCOHOL
     Indication: Product used for unknown indication
     Dosage: UNK
     Route: 065
  4. ACETAMINOPHEN [Suspect]
     Active Substance: ACETAMINOPHEN
     Indication: Product used for unknown indication
     Dosage: UNK, INGESTED LARGE AMOUNTS
     Route: 048
  5. ACETAMINOPHEN [Suspect]
     Active Substance: ACETAMINOPHEN
     Dosage: UNK
     Route: 065
  6. ATENOLOL [Suspect]
     Active Substance: ATENOLOL
     Indication: Product used for unknown indication
     Dosage: UNK, INGESTED LARGE AMOUNTS
     Route: 048
  7. ATENOLOL [Suspect]
     Active Substance: ATENOLOL
     Dosage: UNK
     Route: 065
  8. CITALOPRAM [Suspect]
     Active Substance: CITALOPRAM HYDROBROMIDE
     Indication: Depression
     Dosage: UNK
     Route: 048
  9. NIFEDIPINE [Suspect]
     Active Substance: NIFEDIPINE
     Indication: Product used for unknown indication
     Dosage: 100 MILLIGRAM
     Route: 048
  10. ZOPICLONE [Suspect]
     Active Substance: ZOPICLONE
     Indication: Product used for unknown indication
     Dosage: UNK, LOW TO MODERATE DOSES
     Route: 048
  11. PROPRANOLOL HYDROCHLORIDE [Suspect]
     Active Substance: PROPRANOLOL HYDROCHLORIDE
     Indication: Product used for unknown indication
     Dosage: 400 MILLIGRAM, APPROX. 400 MG
     Route: 048
  12. VENLAFAXINE [Suspect]
     Active Substance: VENLAFAXINE HYDROCHLORIDE
     Indication: Product used for unknown indication
     Dosage: UNK, INGESTED LARGE AMOUNTS
     Route: 048
  13. VENLAFAXINE [Suspect]
     Active Substance: VENLAFAXINE HYDROCHLORIDE
     Dosage: UNK
     Route: 065

REACTIONS (21)
  - Hypokinesia [Recovered/Resolved]
  - Toxicity to various agents [Recovered/Resolved with Sequelae]
  - Shock [Recovered/Resolved]
  - Suicide attempt [Recovered/Resolved with Sequelae]
  - Blood lactic acid increased [Unknown]
  - Ejection fraction decreased [Recovered/Resolved]
  - Heart rate decreased [Recovered/Resolved]
  - Delirium [Recovered/Resolved with Sequelae]
  - Left ventricular dysfunction [Recovered/Resolved]
  - Loss of consciousness [Recovered/Resolved]
  - Pneumonia [Recovered/Resolved with Sequelae]
  - Hypotension [Recovered/Resolved]
  - Hypertension [Unknown]
  - Myocardial depression [Recovered/Resolved]
  - Seizure [Recovered/Resolved]
  - Blood glucose decreased [Recovered/Resolved]
  - Alcohol interaction [Recovered/Resolved]
  - Peripheral coldness [Recovered/Resolved]
  - Peripheral vascular disorder [Recovered/Resolved]
  - Intentional overdose [Recovered/Resolved]
  - Anuria [Recovered/Resolved]
